FAERS Safety Report 18685605 (Version 1)
Quarter: 2020Q4

REPORT INFORMATION
  Report Type: Spontaneous
  Country: CN (occurrence: CN)
  Receive Date: 20201231
  Receipt Date: 20201231
  Transmission Date: 20210114
  Serious: Yes (Hospitalization)
  Sender: FDA-Public Use
  Company Number: CN-AMGEN-CHNSP2020211463

PATIENT
  Age: 72 Year
  Sex: Male

DRUGS (3)
  1. RECOMBINANT HUMAN GRANULOCYTE COLONY STIMULATING FACTOR [Concomitant]
     Active Substance: GRANULOCYTE COLONY-STIMULATING FACTOR NOS
     Indication: PRODUCT USED FOR UNKNOWN INDICATION
     Dosage: 100 MICROGRAM, QD
     Route: 058
     Dates: start: 20191204, end: 20191206
  2. MEROPENEM. [Suspect]
     Active Substance: MEROPENEM
     Indication: ANTIBIOTIC THERAPY
     Dosage: 0.5 GRAM
     Route: 042
     Dates: start: 20191207, end: 20191207
  3. GRAN [Suspect]
     Active Substance: FILGRASTIM
     Indication: SYMPTOMATIC TREATMENT
     Dosage: 300 MICROGRAM, QD
     Route: 058
     Dates: start: 20191207, end: 20191210

REACTIONS (2)
  - Rash [Recovering/Resolving]
  - Pruritus [Recovered/Resolved]

NARRATIVE: CASE EVENT DATE: 20191207
